FAERS Safety Report 7435368-5 (Version None)
Quarter: 2011Q2

REPORT INFORMATION
  Report Type: 
  Country: None (occurrence: None)
  Receive Date: 20110425
  Receipt Date: 20110412
  Transmission Date: 20111010
  Serious: Yes (Death)
  Sender: FDA-Public Use
  Company Number: B0714739A

PATIENT
  Sex: Male

DRUGS (1)
  1. MARAVIROC [Suspect]
     Indication: HIV INFECTION
     Dates: end: 20060901

REACTIONS (1)
  - DEATH [None]
